FAERS Safety Report 8623411-7 (Version None)
Quarter: 2012Q3

REPORT INFORMATION
  Report Type: 
  Country: None (occurrence: None)
  Receive Date: 20120827
  Receipt Date: 20120820
  Transmission Date: 20120928
  Serious: Yes (Other)
  Sender: FDA-Public Use
  Company Number: PHHY2012US071851

PATIENT
  Age: 46 Year
  Sex: Female
  Weight: 40 kg

DRUGS (3)
  1. PHENYTOIN [Interacting]
     Indication: CONVULSION
  2. LEVETIRACETAM [Suspect]
     Indication: CONVULSION
  3. PHENOBARBITAL TAB [Interacting]
     Indication: CONVULSION

REACTIONS (3)
  - HYPOTHYROIDISM [None]
  - CONCOMITANT DISEASE PROGRESSION [None]
  - DRUG INTERACTION [None]
